FAERS Safety Report 9237912 (Version 1)
Quarter: 2013Q2

REPORT INFORMATION
  Report Type: Spontaneous
  Country: RO (occurrence: None)
  Receive Date: 20130415
  Receipt Date: 20130415
  Transmission Date: 20140414
  Serious: Yes (Hospitalization, Other)
  Sender: FDA-Public Use
  Company Number: AUR-APL-2013-03014

PATIENT
  Age: 24 Year
  Sex: Male

DRUGS (3)
  1. RIBAVIRIN (RIBAVIRIN) [Suspect]
     Indication: CHRONIC HEPATITIS C
  2. RIBAVIRIN (RIBAVIRIN) [Suspect]
     Indication: CHRONIC HEPATITIS C
  3. PEGINTERFERON ALFA-2A [Suspect]
     Indication: CHRONIC HEPATITIS C
     Dosage: 180 MCG ONCE A WEEK., NOT CONTINUING.

REACTIONS (6)
  - Autoimmune thyroiditis [None]
  - Anaemia [None]
  - Leukopenia [None]
  - Glycosylated haemoglobin increased [None]
  - Hyperglycaemia [None]
  - Insulin resistance [None]
